FAERS Safety Report 17127333 (Version 5)
Quarter: 2020Q1

REPORT INFORMATION
  Report Type: Spontaneous
  Country: US (occurrence: US)
  Receive Date: 20191209
  Receipt Date: 20200317
  Transmission Date: 20200409
  Serious: Yes (Hospitalization, Other)
  Sender: FDA-Public Use
  Company Number: US-009507513-1912USA001261

PATIENT
  Age: 63 Year
  Sex: Female

DRUGS (8)
  1. VENLAFAXINE HYDROCHLORIDE. [Concomitant]
     Active Substance: VENLAFAXINE HYDROCHLORIDE
     Dosage: UNK
  2. KLONOPIN [Concomitant]
     Active Substance: CLONAZEPAM
     Dosage: UNK, TWICE DAILY (BID)
  3. SPIRIVA [Concomitant]
     Active Substance: TIOTROPIUM BROMIDE MONOHYDRATE
     Dosage: 1 PUFF IN AM AND 2 PUFFS IN PM
  4. NORVASC [Concomitant]
     Active Substance: AMLODIPINE BESYLATE
     Dosage: UNK
  5. DULERA [Suspect]
     Active Substance: FORMOTEROL FUMARATE DIHYDRATE\MOMETASONE FUROATE
     Indication: CHRONIC OBSTRUCTIVE PULMONARY DISEASE
     Dosage: 2 PUFFS TWICE DAILY
     Route: 055
     Dates: start: 2014
  6. WELLBUTRIN [Concomitant]
     Active Substance: BUPROPION HYDROCHLORIDE
     Dosage: UNK
  7. SPIRIVA [Concomitant]
     Active Substance: TIOTROPIUM BROMIDE MONOHYDRATE
     Dosage: UNK
  8. DULERA [Suspect]
     Active Substance: FORMOTEROL FUMARATE DIHYDRATE\MOMETASONE FUROATE
     Dosage: 1 PUFF IN AM AND 2 PUFFS IN PM
     Route: 055
     Dates: start: 20200128

REACTIONS (12)
  - Poor quality device used [Unknown]
  - Respiratory failure [Unknown]
  - Underdose [Unknown]
  - Dyspnoea [Not Recovered/Not Resolved]
  - Product dose omission [Unknown]
  - Poor quality device used [Unknown]
  - Therapeutic product effect delayed [Unknown]
  - Poor quality sleep [Not Recovered/Not Resolved]
  - Product quality issue [Unknown]
  - Mental disorder [Unknown]
  - Hypoxia [Unknown]
  - Product quality issue [Unknown]

NARRATIVE: CASE EVENT DATE: 2017
